FAERS Safety Report 9530669 (Version 4)
Quarter: 2013Q4

REPORT INFORMATION
  Report Type: Report from Study
  Country: FI (occurrence: FI)
  Receive Date: 20130918
  Receipt Date: 20131114
  Transmission Date: 20140711
  Serious: Yes (Hospitalization)
  Sender: FDA-Public Use
  Company Number: FI-ROCHE-1276562

PATIENT
  Age: 68 Year
  Sex: Female
  Weight: 67 kg

DRUGS (3)
  1. BEVACIZUMAB [Suspect]
     Indication: OVARIAN CANCER
     Dosage: LAST DOSE PRIOR TO FEVER WITHOUT NEUTROPENIA: 27/AUG/2013, LAST DOSE PRIOR TO FEVER AND WORSENING OF
     Route: 042
     Dates: start: 20130716
  2. CARBOPLATIN [Suspect]
     Indication: OVARIAN CANCER
     Dosage: LAST DOSE PRIOR TO FEVER WITHOUT NEUTROPENIA: 27/AUG/2013, LAST DOSE PRIOR TO FEVER AND WORSENING OF
     Route: 042
     Dates: start: 20130716
  3. PACLITAXEL [Suspect]
     Indication: OVARIAN CANCER
     Dosage: LAST DOSE PRIOR TO FEVER WITHOUT NEUTROPENIA: 27/AUG/2013, LAST DOSE PRIOR TO FEVER AND WORSENING OF
     Route: 042
     Dates: start: 20130716

REACTIONS (2)
  - Pyrexia [Recovered/Resolved]
  - General physical health deterioration [Recovered/Resolved]
